FAERS Safety Report 5965768-1 (Version None)
Quarter: 2008Q4

REPORT INFORMATION
  Report Type: 
  Country: None (occurrence: None)
  Receive Date: 20081125
  Receipt Date: 20081117
  Transmission Date: 20090506
  Serious: Yes (Other)
  Sender: FDA-Public Use
  Company Number: US-PURDUE-USA_2008_0035395

PATIENT
  Age: 50 Year
  Sex: Female
  Weight: 75 kg

DRUGS (4)
  1. THYROID TAB [Concomitant]
     Indication: HYPOTHYROIDISM
     Dosage: 60 GRAM, DAILY
     Dates: start: 20000101
  2. ESTRACE [Concomitant]
     Indication: MENOPAUSE
     Dosage: 1 MG, DAILY
     Dates: start: 20000101, end: 20080101
  3. PROMETRIUM [Concomitant]
     Indication: MENOPAUSE
     Dosage: 200 GRAM, DAILY
     Dates: start: 20000101, end: 20080101
  4. OXYCONTIN [Suspect]
     Indication: PAIN
     Dosage: 40 MG, TID
     Dates: start: 20021205

REACTIONS (3)
  - DENTAL CARIES [None]
  - TEETH BRITTLE [None]
  - TOOTH EROSION [None]
